FAERS Safety Report 9964012 (Version 4)
Quarter: 2014Q3

REPORT INFORMATION
  Report Type: Spontaneous
  Country: US (occurrence: US)
  Receive Date: 20140305
  Receipt Date: 20140814
  Transmission Date: 20150326
  Serious: Yes (Other)
  Sender: FDA-Public Use
  Company Number: US-GLAXOSMITHKLINE-A1062549A

PATIENT
  Age: 50 Year
  Sex: Female
  Weight: 66.2 kg

DRUGS (9)
  1. COLCHICINE. [Concomitant]
     Active Substance: COLCHICINE
     Dosage: .6MG PER DAY
     Route: 048
  2. PROVENTIL [Suspect]
     Active Substance: ALBUTEROL
     Indication: PRODUCT USED FOR UNKNOWN INDICATION
     Route: 065
  3. ADVAIR HFA [Suspect]
     Active Substance: FLUTICASONE PROPIONATE\SALMETEROL XINAFOATE
     Indication: ASTHMA
     Dosage: 1PUFF TWICE PER DAY
     Route: 055
     Dates: start: 201205, end: 20140224
  4. XOPENEX [Suspect]
     Active Substance: LEVALBUTEROL HYDROCHLORIDE
     Indication: PRODUCT USED FOR UNKNOWN INDICATION
     Dosage: .63MG AS REQUIRED
     Route: 055
  5. LEVOXYL [Concomitant]
     Active Substance: LEVOTHYROXINE SODIUM
  6. UNKNOWN [Concomitant]
     Active Substance: UNSPECIFIED INGREDIENT
  7. BIAXIN [Suspect]
     Active Substance: CLARITHROMYCIN
     Indication: SINUSITIS
     Dosage: 250MG TWICE PER DAY
     Route: 048
  8. BENADRYL [Suspect]
     Active Substance: DIPHENHYDRAMINE HYDROCHLORIDE
     Indication: HYPERSENSITIVITY
     Dosage: 50MG UNKNOWN
     Route: 042
  9. ACIPHEX [Concomitant]
     Active Substance: RABEPRAZOLE SODIUM
     Dosage: 20MG PER DAY
     Route: 048

REACTIONS (59)
  - Myocardial infarction [Recovered/Resolved]
  - Blood pressure increased [Recovered/Resolved]
  - Dysphagia [Unknown]
  - Anxiety [Unknown]
  - Drug ineffective [Unknown]
  - Ventricular extrasystoles [Unknown]
  - Cerebrovascular accident [Recovered/Resolved]
  - Disorientation [Recovering/Resolving]
  - Nausea [Recovered/Resolved]
  - Headache [Recovered/Resolved]
  - Pharyngeal disorder [Unknown]
  - Swelling face [Recovering/Resolving]
  - Feeling abnormal [Recovering/Resolving]
  - Asthma [Recovering/Resolving]
  - Burning sensation [Unknown]
  - Alopecia [Unknown]
  - Irritability [Unknown]
  - Cyst [Unknown]
  - Fear [Unknown]
  - Confusional state [Recovered/Resolved]
  - Abasia [Recovered/Resolved]
  - Rash [Recovering/Resolving]
  - Urticaria [Unknown]
  - Lip swelling [Unknown]
  - Drug dose omission [Unknown]
  - Mental impairment [Recovering/Resolving]
  - Sinusitis [Unknown]
  - Stridor [Recovered/Resolved]
  - Convulsion [Recovered/Resolved]
  - Weight decreased [Unknown]
  - Decreased immune responsiveness [Unknown]
  - Pruritus [Unknown]
  - Hypoaesthesia [Recovered/Resolved]
  - Neck pain [Recovered/Resolved]
  - Laryngeal neoplasm [Not Recovered/Not Resolved]
  - Autoscopy [Recovered/Resolved]
  - Erythema [Recovering/Resolving]
  - Palpitations [Recovering/Resolving]
  - Eye disorder [Unknown]
  - Swollen tongue [Unknown]
  - Cardiac disorder [Unknown]
  - Flushing [Unknown]
  - Terminal state [Recovered/Resolved]
  - Choking sensation [Recovered/Resolved]
  - Paraesthesia [Recovered/Resolved]
  - Speech disorder [Unknown]
  - Upper respiratory tract infection [Recovered/Resolved]
  - Chest discomfort [Not Recovered/Not Resolved]
  - Anaphylactic reaction [Unknown]
  - Dyspnoea [Unknown]
  - VIIth nerve paralysis [Recovering/Resolving]
  - Loss of libido [Unknown]
  - Insomnia [Unknown]
  - Neoplasm malignant [Unknown]
  - Sinus tachycardia [Unknown]
  - Dizziness [Recovered/Resolved]
  - Oropharyngeal candidiasis [Recovered/Resolved]
  - Bronchitis [Unknown]
  - Panic reaction [Recovering/Resolving]

NARRATIVE: CASE EVENT DATE: 2013
